FAERS Safety Report 23767457 (Version 2)
Quarter: 2024Q2

REPORT INFORMATION
  Report Type: Spontaneous
  Country: US (occurrence: US)
  Receive Date: 20240422
  Receipt Date: 20240509
  Transmission Date: 20240716
  Serious: No
  Sender: FDA-Public Use
  Company Number: US-ALCON LABORATORIES-ALC2023US004809

PATIENT
  Sex: Male

DRUGS (1)
  1. ROCKLATAN [Suspect]
     Active Substance: LATANOPROST\NETARSUDIL MESYLATE
     Indication: Product used for unknown indication
     Dosage: 1 DROP IN BOTH EYES AT BED TIME
     Route: 047

REACTIONS (4)
  - Wrong technique in product usage process [Unknown]
  - Drug delivery system issue [Unknown]
  - Lacrimation increased [Recovered/Resolved]
  - Vision blurred [Recovered/Resolved]
